FAERS Safety Report 14958709 (Version 1)
Quarter: 2018Q2

REPORT INFORMATION
  Report Type: Spontaneous
  Country: US (occurrence: US)
  Receive Date: 20180531
  Receipt Date: 20180531
  Transmission Date: 20180711
  Serious: No
  Sender: FDA-Public Use
  Company Number: US-JNJFOC-20180518902

PATIENT
  Sex: Female

DRUGS (2)
  1. ZYRTEC [Suspect]
     Active Substance: CETIRIZINE HYDROCHLORIDE
     Route: 048
  2. ZYRTEC [Suspect]
     Active Substance: CETIRIZINE HYDROCHLORIDE
     Indication: PRODUCT USED FOR UNKNOWN INDICATION
     Dosage: ZYRTEC ALLERGY- 14 TABLETS, INDIVIDUAL BLISTERS 10 MG EACH, 24 HOUR RELIEF
     Route: 048

REACTIONS (5)
  - Ear congestion [Unknown]
  - Nasal dryness [Unknown]
  - Sinus congestion [Unknown]
  - Condition aggravated [Unknown]
  - Epistaxis [Unknown]
